FAERS Safety Report 7246017-3 (Version None)
Quarter: 2011Q1

REPORT INFORMATION
  Report Type: 
  Country: None (occurrence: None)
  Receive Date: 20110126
  Receipt Date: 20110114
  Transmission Date: 20110831
  Serious: Yes (Other)
  Sender: FDA-Public Use
  Company Number: AU-ELI_LILLY_AND_COMPANY-AU201101003632

PATIENT
  Age: 37 Year
  Sex: Male

DRUGS (2)
  1. CIALIS [Suspect]
     Dosage: 20 MG, UNK
  2. CIALIS [Suspect]
     Indication: ERECTILE DYSFUNCTION
     Dosage: 0.5 D/F, UNK
     Dates: start: 20101201, end: 20110101

REACTIONS (3)
  - OCULAR HYPERAEMIA [None]
  - DRUG INEFFECTIVE [None]
  - MEDICATION ERROR [None]
